FAERS Safety Report 13643671 (Version 2)
Quarter: 2017Q3

REPORT INFORMATION
  Report Type: Spontaneous
  Country: FR (occurrence: FR)
  Receive Date: 20170612
  Receipt Date: 20170901
  Transmission Date: 20171127
  Serious: Yes (Other)
  Sender: FDA-Public Use
  Company Number: FR-BAYER-2017-111076

PATIENT
  Age: 42 Year
  Sex: Female

DRUGS (2)
  1. MIRENA [Suspect]
     Active Substance: LEVONORGESTREL
     Indication: CONTRACEPTION
     Dosage: 20 MCG/24HR, CONT
     Route: 015
     Dates: start: 201206, end: 20170429
  2. LEVOTHYROX [Concomitant]
     Active Substance: LEVOTHYROXINE

REACTIONS (11)
  - Abnormal weight gain [Recovered/Resolved]
  - Trichorrhexis [Recovered/Resolved]
  - Insomnia [Recovering/Resolving]
  - Anxiety [Recovered/Resolved]
  - Abdominal distension [Unknown]
  - Incontinence [Recovered/Resolved]
  - Onychoclasis [Recovered/Resolved]
  - Seborrhoea [Recovered/Resolved]
  - Loss of libido [Recovered/Resolved]
  - Cervical polyp [Not Recovered/Not Resolved]
  - Back pain [Recovered/Resolved]

NARRATIVE: CASE EVENT DATE: 2012
